FAERS Safety Report 5146089-6 (Version None)
Quarter: 2006Q4

REPORT INFORMATION
  Report Type: 
  Country: None (occurrence: None)
  Receive Date: 20061108
  Receipt Date: 20061102
  Transmission Date: 20070319
  Serious: Yes (Hospitalization)
  Sender: FDA-Public Use
  Company Number: 2006UW21438

PATIENT
  Age: 39 Year
  Sex: Female
  Weight: 79.4 kg

DRUGS (3)
  1. PULMICORT [Suspect]
     Indication: ASTHMA
     Route: 055
     Dates: start: 20050101
  2. SINGULAIR [Concomitant]
  3. ALBUTEROL [Concomitant]

REACTIONS (1)
  - ASTHMA [None]
